FAERS Safety Report 4405842-4 (Version None)
Quarter: 2004Q3

REPORT INFORMATION
  Report Type: 
  Country: None (occurrence: None)
  Receive Date: 20040723
  Receipt Date: 20040113
  Transmission Date: 20050211
  Serious: No
  Sender: FDA-Public Use
  Company Number: US-GLAXOSMITHKLINE-A0492917A

PATIENT
  Sex: Female

DRUGS (9)
  1. AVANDIA [Suspect]
     Dosage: 4MG PER DAY
     Route: 048
     Dates: start: 20031201
  2. GLUCOPHAGE [Concomitant]
  3. UNSPECIFIED MEDICATION [Concomitant]
  4. PREMPRO [Concomitant]
  5. PREMARIN [Concomitant]
  6. LEVAQUIN [Concomitant]
  7. MAXZIDE [Concomitant]
  8. TOPROL-XL [Concomitant]
  9. NEXIUM [Concomitant]

REACTIONS (1)
  - WEIGHT INCREASED [None]
